FAERS Safety Report 7420610-7 (Version None)
Quarter: 2011Q2

REPORT INFORMATION
  Report Type: 
  Country: None (occurrence: None)
  Receive Date: 20110418
  Receipt Date: 20110406
  Transmission Date: 20111010
  Serious: Yes (Other)
  Sender: FDA-Public Use
  Company Number: US-ROCHE-433851

PATIENT
  Sex: Male
  Weight: 77.1 kg

DRUGS (6)
  1. TUMS [Concomitant]
     Indication: ABDOMINAL PAIN
  2. METHAMPHETAMINE [Concomitant]
     Dates: start: 20010101, end: 20040101
  3. ACCUTANE [Suspect]
     Route: 048
     Dates: start: 20020307, end: 20020608
  4. ZOLOFT [Concomitant]
     Indication: DEPRESSION
     Dates: start: 19970101
  5. ACETAMINOPHEN [Concomitant]
  6. ACCUTANE [Suspect]
     Indication: ACNE
     Route: 048
     Dates: start: 19960101, end: 19990101

REACTIONS (14)
  - INFLAMMATORY BOWEL DISEASE [None]
  - SUICIDE ATTEMPT [None]
  - PSYCHOTIC DISORDER [None]
  - MANIA [None]
  - BLOOD TRIGLYCERIDES INCREASED [None]
  - ANXIETY [None]
  - BIPOLAR DISORDER [None]
  - EPISTAXIS [None]
  - DEPRESSION [None]
  - COLITIS [None]
  - SUICIDAL IDEATION [None]
  - HIV INFECTION [None]
  - IRRITABLE BOWEL SYNDROME [None]
  - SKIN HAEMORRHAGE [None]
